FAERS Safety Report 15407252 (Version 1)
Quarter: 2018Q3

REPORT INFORMATION
  Report Type: Spontaneous
  Country: MX (occurrence: MX)
  Receive Date: 20180920
  Receipt Date: 20180920
  Transmission Date: 20181010
  Serious: Yes (Hospitalization)
  Sender: FDA-Public Use
  Company Number: MX-SA-2018SA248682

PATIENT
  Age: 69 Year
  Sex: Male
  Weight: 66 kg

DRUGS (3)
  1. LANTUS [Suspect]
     Active Substance: INSULIN GLARGINE
     Indication: TYPE 1 DIABETES MELLITUS
     Dosage: 10 IU, QD
     Route: 065
     Dates: start: 2015, end: 20180801
  2. LANTUS [Suspect]
     Active Substance: INSULIN GLARGINE
     Dosage: 18 UNK
     Route: 065
     Dates: start: 20180801
  3. XILIARXS [Concomitant]
     Indication: TYPE 1 DIABETES MELLITUS
     Dosage: 50 MG, QD
     Route: 048
     Dates: start: 2015

REACTIONS (3)
  - Cholelithiasis [Recovered/Resolved]
  - Tremor [Not Recovered/Not Resolved]
  - Hyperglycaemia [Recovered/Resolved]

NARRATIVE: CASE EVENT DATE: 2015
